FAERS Safety Report 15365963 (Version 1)
Quarter: 2018Q3

REPORT INFORMATION
  Report Type: Spontaneous
  Country: ES (occurrence: ES)
  Receive Date: 20180910
  Receipt Date: 20180910
  Transmission Date: 20181010
  Serious: Yes (Hospitalization)
  Sender: FDA-Public Use
  Company Number: ES-ROCHE-2182607

PATIENT
  Age: 54 Year
  Sex: Female

DRUGS (6)
  1. URSOCHOL [Concomitant]
     Active Substance: URSODIOL
     Indication: HEPATIC CIRRHOSIS
     Dosage: 150 MG COMPRIMIDOS, 60 COMPRIMIDOS
     Route: 048
     Dates: start: 20170511, end: 20180201
  2. PREDNISONA [Concomitant]
     Active Substance: PREDNISONE
     Indication: HEPATIC CIRRHOSIS
     Route: 048
     Dates: start: 20170511, end: 20180201
  3. MYCOPHENOLATE MOFETIL. [Suspect]
     Active Substance: MYCOPHENOLATE MOFETIL
     Indication: LIVER TRANSPLANT
     Route: 048
     Dates: start: 20180202
  4. TACROLIMUS. [Interacting]
     Active Substance: TACROLIMUS
     Indication: LIVER TRANSPLANT
     Route: 048
     Dates: start: 20180202
  5. IMUREL [Concomitant]
     Active Substance: AZATHIOPRINE SODIUM
     Indication: HEPATIC CIRRHOSIS
     Dosage: 50 MG COMPRIMIDOS RECUBIERTOS CON PELICULA , 50 CO...
     Route: 048
     Dates: start: 20170511, end: 20180201
  6. PREDNISONA [Interacting]
     Active Substance: PREDNISONE
     Indication: LIVER TRANSPLANT
     Route: 048
     Dates: start: 20180202

REACTIONS (1)
  - Venoocclusive liver disease [Recovering/Resolving]

NARRATIVE: CASE EVENT DATE: 20180316
